FAERS Safety Report 9136888 (Version 2)
Quarter: 2013Q1

REPORT INFORMATION
  Report Type: Spontaneous
  Country: DE (occurrence: DE)
  Receive Date: 20130304
  Receipt Date: 20130314
  Transmission Date: 20140127
  Serious: Yes (Other)
  Sender: FDA-Public Use
  Company Number: DE-ASTRAZENECA-2013SE12290

PATIENT
  Age: 71 Year
  Sex: Female
  Weight: 51 kg

DRUGS (2)
  1. ARIMIDEX [Suspect]
     Indication: BREAST CANCER FEMALE
     Route: 048
     Dates: start: 2008
  2. ARIMIDEX [Suspect]
     Indication: BREAST CANCER FEMALE
     Route: 048
     Dates: start: 2006, end: 2011

REACTIONS (1)
  - Malignant pituitary tumour [Unknown]
